FAERS Safety Report 4826863-3 (Version None)
Quarter: 2005Q4

REPORT INFORMATION
  Report Type: 
  Country: None (occurrence: None)
  Receive Date: 20051114
  Receipt Date: 20051019
  Transmission Date: 20060501
  Serious: Yes (Hospitalization)
  Sender: FDA-Public Use
  Company Number: US-AMGEN-US154941

PATIENT
  Sex: Female
  Weight: 114 kg

DRUGS (8)
  1. NEUPOGEN [Suspect]
     Indication: CHEMOTHERAPY
     Route: 058
     Dates: start: 20050830, end: 20050901
  2. NEUPOGEN [Suspect]
     Route: 058
     Dates: start: 20050904, end: 20050904
  3. CYTOXAN [Concomitant]
     Route: 042
     Dates: start: 20050808
  4. ADRIAMYCIN PFS [Concomitant]
     Route: 042
     Dates: start: 20050808
  5. PREVACID [Concomitant]
  6. PEPCID [Concomitant]
  7. METFORMIN [Concomitant]
  8. ANTIHYPERTENSIVE MEDICATION NOS [Concomitant]
     Route: 048

REACTIONS (6)
  - ASTHENIA [None]
  - CELLULITIS [None]
  - DIARRHOEA [None]
  - FATIGUE [None]
  - OCCULT BLOOD POSITIVE [None]
  - STREPTOCOCCAL INFECTION [None]
